FAERS Safety Report 17227231 (Version 1)
Quarter: 2020Q1

REPORT INFORMATION
  Report Type: Spontaneous
  Country: US (occurrence: US)
  Receive Date: 20200103
  Receipt Date: 20200103
  Transmission Date: 20200409
  Serious: Yes (Hospitalization)
  Sender: FDA-Public Use
  Company Number: US-ROCHE-2510277

PATIENT
  Age: 2 Year
  Sex: Female

DRUGS (1)
  1. PULMOZYME [Suspect]
     Active Substance: DORNASE ALFA
     Indication: PRODUCT USED FOR UNKNOWN INDICATION
     Dosage: 2.5MG/2.5ML?1 MG/ML AMP
     Route: 055
     Dates: start: 20191201

REACTIONS (2)
  - Rhinovirus infection [Unknown]
  - Enterovirus infection [Unknown]

NARRATIVE: CASE EVENT DATE: 20191224
